FAERS Safety Report 11617057 (Version 4)
Quarter: 2016Q1

REPORT INFORMATION
  Report Type: Spontaneous
  Country: GB (occurrence: GB)
  Receive Date: 20151009
  Receipt Date: 20160302
  Transmission Date: 20160525
  Serious: Yes (Death, Hospitalization, Disabling, Other)
  Sender: FDA-Public Use
  Company Number: PHHY2015GB122081

PATIENT
  Age: 72 Year
  Sex: Female
  Weight: 84 kg

DRUGS (11)
  1. EXEMESTANE. [Concomitant]
     Active Substance: EXEMESTANE
     Indication: BREAST CANCER
     Dosage: 25 MG, QD
     Route: 048
     Dates: start: 20150424
  2. CLENIL MODULITE [Concomitant]
     Active Substance: BECLOMETHASONE DIPROPIONATE
     Indication: PRODUCT USED FOR UNKNOWN INDICATION
     Dosage: 2 DF, BID (TWO PUFFS)
     Route: 055
  3. AMITRIPTYLINE [Concomitant]
     Active Substance: AMITRIPTYLINE
     Indication: PRODUCT USED FOR UNKNOWN INDICATION
     Dosage: 10 MG, QD
     Route: 048
  4. RAMIPRIL. [Concomitant]
     Active Substance: RAMIPRIL
     Indication: PRODUCT USED FOR UNKNOWN INDICATION
     Dosage: 10 MG, QD
     Route: 048
  5. DENOSUMAB [Concomitant]
     Active Substance: DENOSUMAB
     Indication: PRODUCT USED FOR UNKNOWN INDICATION
     Dosage: 120 MG, QMO (EVERY 4 WEEKS)
     Route: 058
  6. PANTOPRAZOLE [Concomitant]
     Active Substance: PANTOPRAZOLE SODIUM
     Indication: PRODUCT USED FOR UNKNOWN INDICATION
     Dosage: 20 MG, QD
     Route: 048
  7. BENDROFLUMETHIAZIDE [Concomitant]
     Active Substance: BENDROFLUMETHIAZIDE
     Indication: PRODUCT USED FOR UNKNOWN INDICATION
     Dosage: 2.5 MG, QD
     Route: 048
  8. CETRIZINE [Concomitant]
     Active Substance: CETIRIZINE HYDROCHLORIDE
     Indication: PRODUCT USED FOR UNKNOWN INDICATION
     Dosage: 10 MG, QD
     Route: 048
  9. DOCUSATE [Concomitant]
     Active Substance: DOCUSATE
     Indication: LOWER RESPIRATORY TRACT INFECTION
     Dosage: 400 MG, QD
     Route: 048
  10. AFINITOR [Suspect]
     Active Substance: EVEROLIMUS
     Indication: BREAST CANCER METASTATIC
     Dosage: 7.5 MG, QD
     Route: 048
     Dates: start: 20150521, end: 20150603
  11. SALBUTAMOL [Concomitant]
     Active Substance: ALBUTEROL
     Indication: PRODUCT USED FOR UNKNOWN INDICATION
     Dosage: 2 DF, PRN
     Route: 055

REACTIONS (25)
  - Tachypnoea [Unknown]
  - Respiratory rate increased [Unknown]
  - Dyspnoea [Fatal]
  - Dizziness [Unknown]
  - Tachycardia [Unknown]
  - Malaise [Unknown]
  - Breast cancer metastatic [Fatal]
  - Metastases to bone [Unknown]
  - Body temperature increased [Unknown]
  - Chest pain [Unknown]
  - Acute respiratory distress syndrome [Fatal]
  - Respiratory failure [Fatal]
  - Pneumonitis [Fatal]
  - Eosinophilia [Unknown]
  - Pulmonary mass [Unknown]
  - Rash [Recovered/Resolved]
  - Fatigue [Unknown]
  - Pleural effusion [Recovered/Resolved]
  - Lung consolidation [Unknown]
  - Sinus tachycardia [Unknown]
  - Atelectasis [Unknown]
  - Inflammatory marker increased [Unknown]
  - Palpitations [Unknown]
  - Rash erythematous [Unknown]
  - Erythema [Unknown]

NARRATIVE: CASE EVENT DATE: 20150521
